FAERS Safety Report 5417962-6 (Version None)
Quarter: 2007Q3

REPORT INFORMATION
  Report Type: 
  Country: None (occurrence: None)
  Receive Date: 20070817
  Receipt Date: 20070808
  Transmission Date: 20080115
  Serious: Yes (Other)
  Sender: FDA-Public Use
  Company Number: JP-NOVOPROD-266157

PATIENT
  Age: 65 Year
  Sex: Female
  Weight: 44 kg

DRUGS (5)
  1. NOVOLIN N [Suspect]
     Indication: INSULIN-REQUIRING TYPE II DIABETES MELLITUS
     Dosage: 8 U, QD
     Route: 058
     Dates: start: 20070519
  2. STOGAR [Concomitant]
     Indication: GASTRIC ULCER
     Dosage: 2 TAB, QD
     Route: 048
     Dates: start: 20061205, end: 20070723
  3. GLUCOBAY [Concomitant]
     Dosage: 9 TAB, QD
     Route: 048
     Dates: start: 20060523
  4. EPATAT [Concomitant]
     Dosage: 9 TAB, QD
     Route: 048
     Dates: start: 20070418
  5. PROHEPARUM [Concomitant]
     Indication: GASTRIC ULCER
     Dosage: 9 TAB, QD
     Route: 048
     Dates: start: 20070723

REACTIONS (1)
  - HEPATIC FUNCTION ABNORMAL [None]
